FAERS Safety Report 10484822 (Version 1)
Quarter: 2014Q3

REPORT INFORMATION
  Report Type: Spontaneous
  Country: JP (occurrence: JP)
  Receive Date: 20140930
  Receipt Date: 20140930
  Transmission Date: 20150326
  Serious: Yes (Hospitalization)
  Sender: FDA-Public Use
  Company Number: JP-BRISTOL-MYERS SQUIBB COMPANY-21427067

PATIENT
  Age: 75 Year
  Sex: Male
  Weight: 66 kg

DRUGS (11)
  1. VESICARE [Concomitant]
     Active Substance: SOLIFENACIN SUCCINATE
  2. IRINOTECAN HCL [Suspect]
     Active Substance: IRINOTECAN HYDROCHLORIDE
     Indication: COLORECTAL CANCER
     Dosage: 8 TIMES
     Route: 041
     Dates: start: 20140501, end: 20140820
  3. 5-FLUOROURACIL [Suspect]
     Active Substance: FLUOROURACIL
     Indication: COLORECTAL CANCER
     Dosage: INTRAVENOUE DRIP?8 TIMES,3440
     Route: 040
     Dates: start: 20140501, end: 20140821
  4. FLIVAS [Concomitant]
     Active Substance: NAFTOPIDIL
  5. LIPITOR [Concomitant]
     Active Substance: ATORVASTATIN CALCIUM
  6. CALSLOT [Concomitant]
     Active Substance: MANIDIPINE HYDROCHLORIDE
  7. ERBITUX [Suspect]
     Active Substance: CETUXIMAB
     Indication: COLORECTAL CANCER
     Dosage: 16 TIMES
     Route: 041
     Dates: start: 20140501, end: 20140826
  8. BLOPRESS [Concomitant]
     Active Substance: CANDESARTAN CILEXETIL
  9. BUFFERIN [Concomitant]
     Active Substance: ASPIRIN
  10. FLOMAX [Concomitant]
     Active Substance: TAMSULOSIN HYDROCHLORIDE
  11. CALCIUM FOLINATE [Suspect]
     Active Substance: LEUCOVORIN CALCIUM
     Indication: COLORECTAL CANCER
     Dosage: 8 TIMES
     Route: 041
     Dates: start: 20140501, end: 20140820

REACTIONS (1)
  - Cholecystitis [Unknown]

NARRATIVE: CASE EVENT DATE: 20140827
